FAERS Safety Report 6566631-8 (Version None)
Quarter: 2010Q1

REPORT INFORMATION
  Report Type: 
  Country: None (occurrence: None)
  Receive Date: 20100202
  Receipt Date: 20100119
  Transmission Date: 20100710
  Serious: Yes (Other)
  Sender: FDA-Public Use
  Company Number: CH-MYLANLABS-2010S1000752

PATIENT
  Age: 35 Year
  Sex: Female
  Weight: 52 kg

DRUGS (16)
  1. FENTANYL [Suspect]
     Indication: INDUCTION OF ANAESTHESIA
  2. FENTANYL [Suspect]
     Indication: MAINTENANCE OF ANAESTHESIA
  3. FENTANYL [Suspect]
     Dosage: TOTAL OF BOLUS DOSES
  4. FENTANYL [Suspect]
     Dosage: TOTAL OF BOLUS DOSES
  5. MORPHINE [Suspect]
     Indication: PAIN
  6. HYPERICUM [Concomitant]
     Indication: DEPRESSION
  7. MISOPROSTOL [Concomitant]
     Route: 048
  8. MIDAZOLAM HCL [Concomitant]
     Route: 048
  9. PROPOFOL [Concomitant]
     Indication: INDUCTION OF ANAESTHESIA
  10. LIDOCAINE [Concomitant]
     Indication: INDUCTION OF ANAESTHESIA
  11. ROCURONIUM BROMIDE [Concomitant]
     Indication: INDUCTION OF ANAESTHESIA
  12. SEVOFLURANE [Concomitant]
     Indication: MAINTENANCE OF ANAESTHESIA
  13. ROCURONIUM BROMIDE [Concomitant]
     Indication: MAINTENANCE OF ANAESTHESIA
     Dosage: TOTAL DOSE
  14. CLINDAMYCIN [Concomitant]
  15. KETOROLAC TROMETHAMINE [Concomitant]
  16. PARACETAMOL [Concomitant]
     Indication: PAIN

REACTIONS (2)
  - DYSTONIA [None]
  - PARKINSONISM [None]
